FAERS Safety Report 18618000 (Version 1)
Quarter: 2020Q4

REPORT INFORMATION
  Report Type: Other
  Country: AR (occurrence: AR)
  Receive Date: 20201215
  Receipt Date: 20201215
  Transmission Date: 20210114
  Serious: Yes (Hospitalization, Other)
  Sender: FDA-Public Use
  Company Number: AR-ROCHE-2127670

PATIENT
  Age: 19 Year
  Sex: Female

DRUGS (1)
  1. XOLAIR [Suspect]
     Active Substance: OMALIZUMAB
     Indication: ASTHMA
     Route: 058
     Dates: start: 20170628

REACTIONS (9)
  - Pneumonia [Recovering/Resolving]
  - Urinary tract infection [Unknown]
  - Abdominal pain [Unknown]
  - Asthmatic crisis [Not Recovered/Not Resolved]
  - Hepatomegaly [Recovering/Resolving]
  - Bronchial obstruction [Unknown]
  - Pyrexia [Unknown]
  - Bronchospasm [Recovering/Resolving]
  - Abdominal discomfort [Recovering/Resolving]

NARRATIVE: CASE EVENT DATE: 20201129
